FAERS Safety Report 26007190 (Version 1)
Quarter: 2025Q4

REPORT INFORMATION
  Report Type: Spontaneous
  Country: US (occurrence: US)
  Receive Date: 20251106
  Receipt Date: 20251106
  Transmission Date: 20260117
  Serious: No
  Sender: BAYER HEALTHCARE LLC
  Company Number: US-BAYER-2025A146946

PATIENT
  Sex: Female

DRUGS (1)
  1. MIRALAX [Suspect]
     Active Substance: POLYETHYLENE GLYCOL 3350
     Indication: Endoscopy
     Dosage: 4.1OZ OF MIRALAX WITH TWO 16OZ GLASSES OF A BEVERAGE
     Route: 048

REACTIONS (1)
  - Product prescribing issue [Unknown]
